FAERS Safety Report 9149311 (Version 4)
Quarter: 2013Q2

REPORT INFORMATION
  Report Type: Spontaneous
  Country: BR (occurrence: BR)
  Receive Date: 20130308
  Receipt Date: 20130502
  Transmission Date: 20140414
  Serious: Yes (Other)
  Sender: FDA-Public Use
  Company Number: BR-PFIZER INC-2013075940

PATIENT
  Sex: Female

DRUGS (1)
  1. NORDETTE [Suspect]
     Indication: CONTRACEPTION
     Dosage: UNK

REACTIONS (5)
  - Portal vein thrombosis [Unknown]
  - Varices oesophageal [Unknown]
  - Splenomegaly [Unknown]
  - Abdominal pain [Unknown]
  - Liver disorder [Unknown]
